FAERS Safety Report 15832617 (Version 2)
Quarter: 2019Q1

REPORT INFORMATION
  Report Type: Spontaneous
  Country: US (occurrence: US)
  Receive Date: 20190116
  Receipt Date: 20190121
  Transmission Date: 20190417
  Serious: Yes (Life-Threatening)
  Sender: FDA-Public Use
  Company Number: US-ACTELION-A-US2019-184556

PATIENT
  Age: 45 Year
  Sex: Female

DRUGS (2)
  1. OPSUMIT [Suspect]
     Active Substance: MACITENTAN
     Indication: PULMONARY ARTERIAL HYPERTENSION
     Dosage: 10 MG, QD
     Route: 048
     Dates: start: 20171206
  2. OPSUMIT [Suspect]
     Active Substance: MACITENTAN
     Dosage: UNK
     Route: 048
     Dates: start: 201901

REACTIONS (12)
  - Peripheral swelling [Unknown]
  - Dysphonia [Unknown]
  - Fatigue [Unknown]
  - Cough [Unknown]
  - Cardiac disorder [Unknown]
  - Dyspnoea exertional [Unknown]
  - Product dose omission [Unknown]
  - Gait disturbance [Unknown]
  - Abdominal distension [Unknown]
  - Ill-defined disorder [Unknown]
  - Dyspnoea [Unknown]
  - Malaise [Unknown]
